FAERS Safety Report 7023617-7 (Version None)
Quarter: 2010Q3

REPORT INFORMATION
  Report Type: 
  Country: None (occurrence: None)
  Receive Date: 20100930
  Receipt Date: 20100930
  Transmission Date: 20110219
  Serious: Yes (Life-Threatening, Disabling)
  Sender: FDA-Public Use
  Company Number: None

PATIENT
  Age: 74 Year
  Sex: Male
  Weight: 66.2252 kg

DRUGS (1)
  1. AVELOX [Suspect]
     Indication: BRONCHITIS
     Dosage: 400 MG. TAB. ONE DAILY PO ONE DOSE
     Route: 048
     Dates: start: 20100925, end: 20100925

REACTIONS (2)
  - ANAPHYLACTIC REACTION [None]
  - HYPOTENSION [None]
